FAERS Safety Report 12928310 (Version 6)
Quarter: 2018Q1

REPORT INFORMATION
  Report Type: Report from Study
  Country: JP (occurrence: JP)
  Receive Date: 20161110
  Receipt Date: 20180216
  Transmission Date: 20180508
  Serious: Yes (Death, Hospitalization, Other)
  Sender: FDA-Public Use
  Company Number: JP-BRISTOL-MYERS SQUIBB COMPANY-BMS-2016-086580

PATIENT
  Age: 69 Year
  Sex: Male
  Weight: 90.6 kg

DRUGS (10)
  1. RINDERON V [Concomitant]
     Active Substance: BETAMETHASONE VALERATE
     Indication: PRURITUS
     Dosage: 5 G, UNK
     Route: 065
     Dates: start: 20160916, end: 20161120
  2. ZOPICLONE [Concomitant]
     Active Substance: ZOPICLONE
     Indication: INSOMNIA
     Dosage: 7.5 MG, UNK
     Route: 048
     Dates: start: 20161007, end: 20161120
  3. NIVOLUMAB [Suspect]
     Active Substance: NIVOLUMAB
     Indication: METASTATIC MALIGNANT MELANOMA
     Dosage: 3 MG/KG, UNK
     Route: 065
     Dates: start: 20160602, end: 20160812
  4. LOXOPROFEN NA [Concomitant]
     Active Substance: LOXOPROFEN SODIUM
     Indication: METASTATIC MALIGNANT MELANOMA
     Dosage: 60 MG, UNK
     Route: 048
     Dates: start: 20160916, end: 20161120
  5. REBAMIPIDE [Concomitant]
     Active Substance: REBAMIPIDE
     Indication: METASTATIC MALIGNANT MELANOMA
     Dosage: 100 MG, UNK
     Route: 048
     Dates: start: 20160916, end: 20161120
  6. IPILIMUMAB [Suspect]
     Active Substance: IPILIMUMAB
     Indication: PRODUCT USED FOR UNKNOWN INDICATION
     Dosage: 3 MG/KG, ONE TIME DOSE
     Route: 041
     Dates: start: 20161007, end: 20161007
  7. LORATADINE. [Concomitant]
     Active Substance: LORATADINE
     Indication: PRURITUS
     Dosage: 10 MG, UNK
     Route: 048
     Dates: start: 20160916, end: 20161120
  8. IPILIMUMAB [Suspect]
     Active Substance: IPILIMUMAB
     Indication: METASTATIC MALIGNANT MELANOMA
     Dosage: 3 MG/KG, ONE TIME DOSE
     Route: 041
     Dates: start: 20160826, end: 20160826
  9. IPILIMUMAB [Suspect]
     Active Substance: IPILIMUMAB
     Indication: PRODUCT USED FOR UNKNOWN INDICATION
     Dosage: 3 MG/KG, ONE TIME DOSE
     Route: 041
     Dates: start: 20160916, end: 20160916
  10. METOCLOPRAMIDE. [Concomitant]
     Active Substance: METOCLOPRAMIDE
     Indication: NAUSEA
     Dosage: 5 MG, UNK
     Route: 048
     Dates: start: 20161007, end: 20161120

REACTIONS (6)
  - Hepatic function abnormal [Unknown]
  - Transfusion [Unknown]
  - Haematuria [Unknown]
  - Anaemia [Not Recovered/Not Resolved]
  - Malignant neoplasm progression [Fatal]
  - Rash [Not Recovered/Not Resolved]

NARRATIVE: CASE EVENT DATE: 20160916
